FAERS Safety Report 4368280-9 (Version None)
Quarter: 2004Q2

REPORT INFORMATION
  Report Type: 
  Country: None (occurrence: None)
  Receive Date: 20040525
  Receipt Date: 20040518
  Transmission Date: 20050107
  Serious: Yes (Death)
  Sender: FDA-Public Use
  Company Number: 2004-116142-NL

PATIENT
  Age: 44 Year
  Sex: Male

DRUGS (1)
  1. UFH [Suspect]
     Indication: ACUTE CORONARY SYNDROME
     Dates: start: 20040514, end: 20040514

REACTIONS (2)
  - CORONARY ARTERY THROMBOSIS [None]
  - PROCEDURAL COMPLICATION [None]
